FAERS Safety Report 17079945 (Version 3)
Quarter: 2020Q1

REPORT INFORMATION
  Report Type: Spontaneous
  Country: US (occurrence: US)
  Receive Date: 20191127
  Receipt Date: 20200323
  Transmission Date: 20200409
  Serious: No
  Sender: FDA-Public Use
  Company Number: US-AMGEN-USASP2019194332

PATIENT
  Age: 59 Year
  Sex: Female

DRUGS (3)
  1. POTASSIUM [Concomitant]
     Active Substance: POTASSIUM
     Indication: BARTTER^S SYNDROME
     Dosage: 350 MILLIEQUIVALENT, QD
  2. OXYGEN. [Concomitant]
     Active Substance: OXYGEN
     Dosage: UNK
  3. PROLIA [Suspect]
     Active Substance: DENOSUMAB
     Indication: OSTEOPOROSIS POSTMENOPAUSAL
     Dosage: UNK
     Route: 065
     Dates: start: 20191119

REACTIONS (8)
  - Ataxia [Unknown]
  - Vertigo [Recovered/Resolved]
  - Tremor [Unknown]
  - Pain in jaw [Unknown]
  - Palpitations [Recovered/Resolved]
  - Hair disorder [Unknown]
  - Memory impairment [Unknown]
  - Chest pain [Recovered/Resolved]

NARRATIVE: CASE EVENT DATE: 20191120
